FAERS Safety Report 17394556 (Version 1)
Quarter: 2020Q1

REPORT INFORMATION
  Report Type: Spontaneous
  Country: DE (occurrence: DE)
  Receive Date: 20200210
  Receipt Date: 20200210
  Transmission Date: 20200409
  Serious: Yes (Death, Life-Threatening, Hospitalization, Other)
  Sender: FDA-Public Use
  Company Number: DE-AMGEN-DEUSP2020018797

PATIENT

DRUGS (2)
  1. NEUPOGEN [Suspect]
     Active Substance: FILGRASTIM
     Indication: HAEMATOPOIETIC STEM CELL MOBILISATION
     Dosage: UNK
     Route: 065
  2. NEULASTA [Suspect]
     Active Substance: PEGFILGRASTIM
     Indication: HAEMATOPOIETIC STEM CELL MOBILISATION
     Dosage: 6 MILLIGRAM, (48 HOURS AFTER CHEMOTHERAPY)
     Route: 058

REACTIONS (9)
  - Drug ineffective for unapproved indication [Unknown]
  - Multiple organ dysfunction syndrome [Fatal]
  - Infection [Fatal]
  - Aplasia [Fatal]
  - Off label use [Unknown]
  - Febrile neutropenia [Unknown]
  - Non-Hodgkin^s lymphoma recurrent [Fatal]
  - Hypotension [Unknown]
  - Bone pain [Unknown]
